FAERS Safety Report 6328710-X (Version None)
Quarter: 2009Q3

REPORT INFORMATION
  Report Type: 
  Country: None (occurrence: None)
  Receive Date: 20090826
  Receipt Date: 20090820
  Transmission Date: 20100115
  Serious: Yes (Other)
  Sender: FDA-Public Use
  Company Number: PHEH2009US09649

PATIENT

DRUGS (1)
  1. RECLAST [Suspect]
     Indication: OSTEOPOROSIS
     Dosage: UNK
     Dates: start: 20090401

REACTIONS (2)
  - INFECTION [None]
  - TOOTH EXTRACTION [None]
